FAERS Safety Report 6674066-2 (Version None)
Quarter: 2010Q2

REPORT INFORMATION
  Report Type: 
  Country: None (occurrence: None)
  Receive Date: 20100409
  Receipt Date: 20100401
  Transmission Date: 20101027
  Serious: Yes (Hospitalization)
  Sender: FDA-Public Use
  Company Number: CH-BRISTOL-MYERS SQUIBB COMPANY-15046394

PATIENT
  Age: 61 Year
  Sex: Male
  Weight: 58 kg

DRUGS (6)
  1. COAPROVEL [Suspect]
     Route: 048
     Dates: end: 20100226
  2. MALARONE [Suspect]
     Indication: MALARIA PROPHYLAXIS
     Route: 048
     Dates: start: 20100210, end: 20100218
  3. NEBILET [Concomitant]
     Indication: ESSENTIAL HYPERTENSION
     Route: 048
  4. ASPIRIN [Concomitant]
     Route: 048
  5. LAMOTRIGINE [Concomitant]
     Indication: EPILEPSY
     Route: 048
  6. AMLODIPINE [Concomitant]
     Route: 048

REACTIONS (5)
  - ABNORMAL BEHAVIOUR [None]
  - DEHYDRATION [None]
  - DIARRHOEA [None]
  - HYPONATRAEMIA [None]
  - STATUS EPILEPTICUS [None]
